FAERS Safety Report 9886113 (Version 2)
Quarter: 2014Q1

REPORT INFORMATION
  Report Type: Report from Study
  Country: US (occurrence: US)
  Receive Date: 20140210
  Receipt Date: 20140226
  Transmission Date: 20141002
  Serious: Yes (Hospitalization, Other)
  Sender: FDA-Public Use
  Company Number: US-ALEXION-A201400395

PATIENT
  Sex: 0

DRUGS (2)
  1. SOLIRIS [Suspect]
     Indication: HAEMOLYTIC URAEMIC SYNDROME
     Dosage: UNK MG, UNK
     Route: 042
     Dates: start: 20130905, end: 20131126
  2. SOLIRIS [Suspect]
     Indication: OFF LABEL USE
     Dosage: 1200 MG, MON. AND THURS.UNK
     Route: 042
     Dates: start: 20140210

REACTIONS (5)
  - Condition aggravated [Not Recovered/Not Resolved]
  - Renal failure [Unknown]
  - Incorrect dosage administered [Not Recovered/Not Resolved]
  - Inappropriate schedule of drug administration [Not Recovered/Not Resolved]
  - Off label use [Unknown]
